FAERS Safety Report 4809077-2 (Version None)
Quarter: 2005Q4

REPORT INFORMATION
  Report Type: 
  Country: None (occurrence: None)
  Receive Date: 20051021
  Receipt Date: 20050427
  Transmission Date: 20060501
  Serious: No
  Sender: FDA-Public Use
  Company Number: AU_050508549

PATIENT
  Sex: Male

DRUGS (2)
  1. OLANZAPINE [Suspect]
  2. VALPROATE SODIUM [Concomitant]

REACTIONS (1)
  - NEUTROPENIA [None]
